FAERS Safety Report 21764412 (Version 1)
Quarter: 2022Q4

REPORT INFORMATION
  Report Type: Spontaneous
  Country: US (occurrence: None)
  Receive Date: 20221222
  Receipt Date: 20221222
  Transmission Date: 20230112
  Serious: Yes (Other)
  Sender: FDA-Public Use
  Company Number: US-ROCHE-3245244

PATIENT
  Sex: Male
  Weight: 84 kg

DRUGS (4)
  1. CELLCEPT [Suspect]
     Active Substance: MYCOPHENOLATE MOFETIL
     Indication: Product used for unknown indication
     Route: 048
     Dates: start: 20220420, end: 20220718
  2. SOLIRIS [Suspect]
     Active Substance: ECULIZUMAB
     Indication: Myasthenia gravis
     Dosage: 300 MG SOLIRIS CONCENTRATE FOR SOLUTION FOR INFUSION 10 MG/ML
     Route: 065
  3. MESTINON [Suspect]
     Active Substance: PYRIDOSTIGMINE BROMIDE
     Indication: Product used for unknown indication
     Route: 048
  4. LISINOPRIL [Concomitant]
     Active Substance: LISINOPRIL
     Indication: Product used for unknown indication
     Route: 048
     Dates: start: 20220624

REACTIONS (6)
  - Myasthenia gravis [Unknown]
  - Diarrhoea [Unknown]
  - Weight decreased [Unknown]
  - Eyelid disorder [Unknown]
  - Hypertension [Unknown]
  - Anxiety [Unknown]
